FAERS Safety Report 20235220 (Version 4)
Quarter: 2022Q3

REPORT INFORMATION
  Report Type: Spontaneous
  Country: US (occurrence: US)
  Receive Date: 20211228
  Receipt Date: 20220714
  Transmission Date: 20221027
  Serious: No
  Sender: FDA-Public Use
  Company Number: US-ASTELLAS-2021US048953

PATIENT
  Age: 44 Year
  Sex: Male

DRUGS (2)
  1. PADCEV [Suspect]
     Active Substance: ENFORTUMAB VEDOTIN-EJFV
     Indication: Bladder transitional cell carcinoma
     Dosage: 125 MG, CYCLIC (ON DAYS 1, 8, AND 15 OF 28 DAYS CYCLE)
     Route: 042
     Dates: start: 20211026
  2. PADCEV [Suspect]
     Active Substance: ENFORTUMAB VEDOTIN-EJFV
     Dosage: 100 MG, CYCLIC (ON DAYS 1, 8, AND 15 OF 28 DAYS CYCLE)
     Route: 042
     Dates: start: 20211201

REACTIONS (2)
  - Rash [Recovered/Resolved]
  - Fatigue [Recovering/Resolving]

NARRATIVE: CASE EVENT DATE: 20211108
